FAERS Safety Report 9772517 (Version 2)
Quarter: 2013Q4

REPORT INFORMATION
  Report Type: Spontaneous
  Country: US (occurrence: US)
  Receive Date: 20131219
  Receipt Date: 20131223
  Transmission Date: 20140711
  Serious: Yes (Other)
  Sender: FDA-Public Use
  Company Number: US-TEVA-451031USA

PATIENT
  Age: 15 Year
  Sex: Female
  Weight: 59.47 kg

DRUGS (1)
  1. PROAIR HFA [Suspect]
     Indication: ASTHMA
     Route: 055
     Dates: start: 201305

REACTIONS (2)
  - Foreign body aspiration [Not Recovered/Not Resolved]
  - Device breakage [Unknown]
